FAERS Safety Report 5200307-4 (Version None)
Quarter: 2007Q1

REPORT INFORMATION
  Report Type: 
  Country: None (occurrence: None)
  Receive Date: 20070105
  Receipt Date: 20061227
  Transmission Date: 20070707
  Serious: Yes (Other)
  Sender: FDA-Public Use
  Company Number: US-PFIZER INC-2006141749

PATIENT
  Sex: Female
  Weight: 53.5 kg

DRUGS (5)
  1. XANAX [Suspect]
     Indication: ANXIETY
     Dosage: TEXT:UNKNOWN
  2. CHANTIX [Suspect]
     Indication: SMOKING CESSATION THERAPY
     Dosage: TEXT:UNKNOWN
  3. RESTORIL [Concomitant]
  4. PREVACID [Concomitant]
  5. PRENATAL VITAMINS [Concomitant]

REACTIONS (11)
  - BACK PAIN [None]
  - BLEPHARITIS [None]
  - CATARACT OPERATION [None]
  - CONSTIPATION [None]
  - DACRYOCYSTORHINOSTOMY [None]
  - DEPRESSION [None]
  - DRY EYE [None]
  - EYE INFECTION [None]
  - FAECES DISCOLOURED [None]
  - IRRITABILITY [None]
  - SOMNOLENCE [None]
